FAERS Safety Report 14759743 (Version 1)
Quarter: 2018Q2

REPORT INFORMATION
  Report Type: Spontaneous
  Country: US (occurrence: US)
  Receive Date: 20180413
  Receipt Date: 20180413
  Transmission Date: 20180711
  Serious: Yes (Death, Hospitalization)
  Sender: FDA-Public Use
  Company Number: US-ICU MEDICAL, INC.-ICU2018US00007

PATIENT
  Age: 48 Year
  Sex: Male
  Weight: 56.7 kg

DRUGS (2)
  1. MORPHINE SULFATE INJECTION USP 150 MG/30 ML (5 MG/ML) (PCA VIAL) [Suspect]
     Active Substance: MORPHINE SULFATE
     Indication: TUMOUR PAIN
     Dosage: 25 MG/HR; 10 MG BOLUS
     Route: 042
     Dates: start: 20150702, end: 20151113
  2. ATIVAN [Suspect]
     Active Substance: LORAZEPAM
     Indication: ANXIETY
     Dosage: 0.5 MG, AS NEEDED EVERY 6 HOURS
     Route: 050
     Dates: start: 20151025

REACTIONS (5)
  - Pneumonia aspiration [Not Recovered/Not Resolved]
  - Haemorrhage [Fatal]
  - Lethargy [Not Recovered/Not Resolved]
  - Mental status changes [Not Recovered/Not Resolved]
  - Tumour pain [Recovered/Resolved]

NARRATIVE: CASE EVENT DATE: 20151025
